FAERS Safety Report 23513793 (Version 2)
Quarter: 2024Q1

REPORT INFORMATION
  Report Type: Spontaneous
  Country: CA (occurrence: CA)
  Receive Date: 20240212
  Receipt Date: 20240215
  Transmission Date: 20240410
  Serious: Yes (Death)
  Sender: FDA-Public Use
  Company Number: CA-MYLANLABS-2024M1013490

PATIENT
  Age: 69 Year
  Sex: Female

DRUGS (1)
  1. REVATIO [Suspect]
     Active Substance: SILDENAFIL CITRATE
     Indication: Pulmonary hypertension
     Dosage: 20 MILLIGRAM, TID
     Route: 048
     Dates: start: 20240118

REACTIONS (1)
  - Death [Fatal]

NARRATIVE: CASE EVENT DATE: 20240207
